FAERS Safety Report 20590911 (Version 1)
Quarter: 2022Q1

REPORT INFORMATION
  Report Type: Spontaneous
  Country: US (occurrence: US)
  Receive Date: 20220314
  Receipt Date: 20220314
  Transmission Date: 20220423
  Serious: No
  Sender: FDA-Public Use
  Company Number: US-SA-SAC20220308001338

PATIENT
  Sex: Male

DRUGS (14)
  1. DUPIXENT [Suspect]
     Active Substance: DUPILUMAB
     Indication: Dermatitis atopic
     Dosage: 300 MG, QOW
     Route: 058
  2. ENTRESTO [Concomitant]
     Active Substance: SACUBITRIL\VALSARTAN
  3. HYDROXYZINE [Concomitant]
     Active Substance: HYDROXYZINE HYDROCHLORIDE
  4. IBUPROFEN [Concomitant]
     Active Substance: IBUPROFEN
  5. LIDOCAINE [Concomitant]
     Active Substance: LIDOCAINE
  6. TUMS EX [Concomitant]
     Active Substance: CALCIUM CARBONATE
  7. VITAMIN C [Concomitant]
     Active Substance: ASCORBIC ACID
  8. ZINC [Concomitant]
     Active Substance: ZINC
  9. ALBUTEROL [Concomitant]
     Active Substance: ALBUTEROL
  10. ALPRAZOLAM [Concomitant]
     Active Substance: ALPRAZOLAM
  11. ZOLPIDEM TARTRATE [Concomitant]
     Active Substance: ZOLPIDEM TARTRATE
  12. VITAMIN D NOS [Concomitant]
     Active Substance: VITAMIN D NOS
  13. ACETAMINOPHEN [Concomitant]
     Active Substance: ACETAMINOPHEN
  14. BETAMET [BETAMETHASONE SODIUM PHOSPHATE] [Concomitant]

REACTIONS (1)
  - Injection site pain [Not Recovered/Not Resolved]
